FAERS Safety Report 8693262 (Version 6)
Quarter: 2014Q2

REPORT INFORMATION
  Report Type: Spontaneous
  Country: US (occurrence: US)
  Receive Date: 20120730
  Receipt Date: 20140507
  Transmission Date: 20141212
  Serious: Yes (Hospitalization, Other)
  Sender: FDA-Public Use
  Company Number: US-009507513-1207USA007297

PATIENT
  Sex: Female
  Weight: 82.54 kg

DRUGS (2)
  1. FOSAMAX [Suspect]
     Indication: OSTEOPOROSIS
     Dosage: 70 MG, UNK
     Route: 048
     Dates: start: 200605, end: 201105
  2. FOSAMAX PLUS D [Suspect]
     Dosage: 70-2800 MG QW
     Route: 048
     Dates: start: 200605, end: 201105

REACTIONS (32)
  - Femur fracture [Recovering/Resolving]
  - Intramedullary rod insertion [Recovering/Resolving]
  - Intramedullary rod insertion [Unknown]
  - Medical device removal [Unknown]
  - Intramedullary rod insertion [Unknown]
  - Post procedural infection [Unknown]
  - Anaemia postoperative [Unknown]
  - Surgery [Unknown]
  - Fall [Unknown]
  - Femur fracture [Unknown]
  - Incisional drainage [Unknown]
  - Vitamin D deficiency [Unknown]
  - Hypertension [Unknown]
  - Hyperlipidaemia [Unknown]
  - Pain [Unknown]
  - Lumbar spinal stenosis [Unknown]
  - Cataract operation [Unknown]
  - Chronic obstructive pulmonary disease [Unknown]
  - Osteoarthritis [Unknown]
  - Intervertebral disc degeneration [Unknown]
  - Cardiomegaly [Unknown]
  - Hypotension [Unknown]
  - Depression [Unknown]
  - Urinary incontinence [Unknown]
  - Faecal incontinence [Unknown]
  - Sleep disorder [Unknown]
  - Cognitive disorder [Unknown]
  - Emphysema [Unknown]
  - Asthma [Unknown]
  - Pain in extremity [Unknown]
  - Gastrooesophageal reflux disease [Unknown]
  - Constipation [Unknown]
